FAERS Safety Report 8269942-3 (Version None)
Quarter: 2012Q2

REPORT INFORMATION
  Report Type: 
  Country: None (occurrence: None)
  Receive Date: 20120410
  Receipt Date: 20120402
  Transmission Date: 20120825
  Serious: No
  Sender: FDA-Public Use
  Company Number: US-PFIZER INC-2012083927

PATIENT

DRUGS (1)
  1. TETRACYCLINE HCL [Suspect]
     Dosage: UNK
     Route: 064

REACTIONS (2)
  - TOOTH DISORDER [None]
  - MATERNAL EXPOSURE TIMING UNSPECIFIED [None]
